FAERS Safety Report 7466990-8 (Version None)
Quarter: 2011Q2

REPORT INFORMATION
  Report Type: 
  Country: None (occurrence: None)
  Receive Date: 20110428
  Receipt Date: 20110426
  Transmission Date: 20111010
  Serious: Yes (Death)
  Sender: FDA-Public Use
  Company Number: US-2011-10172

PATIENT
  Age: 65 Year
  Sex: Male

DRUGS (18)
  1. FLUDARA [Concomitant]
  2. NEUTROGIN (LENOGRASTIM) [Concomitant]
  3. ZOVIRAX [Concomitant]
  4. BUSULFEX [Suspect]
     Indication: STEM CELL TRANSPLANT
     Dosage: 45 MG MILLIGRAM(S), DROP, 45 MG MILLIGRAM(S), QID
     Dates: start: 20071104, end: 20071107
  5. NEUQUINON (UBIDECARENONE) [Concomitant]
  6. SANDIMMUNE [Suspect]
     Indication: IMMUNOSUPPRESSION
     Dosage: 100 MG MILLIGRAM(S), BID, INTRAVENOUS
     Route: 042
     Dates: start: 20071108, end: 20071205
  7. FILGRASTIM (FILGRASTIM) [Concomitant]
  8. SOLDACTONE (POTASSIUM CANRENOATE) [Concomitant]
  9. G-CSF-PRIMING-ARA-C (G-CSF-PRIMING-ARA-C) [Concomitant]
  10. MAXIPIME [Concomitant]
  11. FAMOTIDINE [Concomitant]
  12. EPADEL (EICOSAPENTAENOIC ACID ETHYL ESTER) [Concomitant]
  13. FLUDARA [Concomitant]
  14. HIBON (RIBOFLAVIN TETRABUTYRATE) [Concomitant]
  15. DIFLUCAN [Concomitant]
  16. URSA (URSODEOXYCHOLIC ACID) [Concomitant]
  17. CELLCEPT [Concomitant]
  18. OMEGACIN (BIAPENEM) [Concomitant]

REACTIONS (5)
  - ILEUS [None]
  - VENOOCCLUSIVE LIVER DISEASE [None]
  - CORD BLOOD TRANSPLANT THERAPY [None]
  - BLOOD BILIRUBIN INCREASED [None]
  - THROMBOTIC MICROANGIOPATHY [None]
